FAERS Safety Report 10933614 (Version 3)
Quarter: 2015Q3

REPORT INFORMATION
  Report Type: Spontaneous
  Country: IE (occurrence: IE)
  Receive Date: 20150320
  Receipt Date: 20150703
  Transmission Date: 20151125
  Serious: Yes (Death)
  Sender: FDA-Public Use
  Company Number: IE-ASTRAZENECA-2015SE23741

PATIENT
  Age: 29432 Day
  Sex: Male
  Weight: 85 kg

DRUGS (10)
  1. WARFARIN [Concomitant]
     Active Substance: WARFARIN
  2. CRESTOR [Suspect]
     Active Substance: ROSUVASTATIN CALCIUM
     Indication: CARDIAC DISORDER
     Route: 048
     Dates: start: 2009
  3. CARDICOR [Concomitant]
     Active Substance: BISOPROLOL
     Indication: ATRIAL FIBRILLATION
     Route: 048
  4. FUCIDIN [Interacting]
     Active Substance: FUSIDIC ACID
     Indication: ARTHRITIS BACTERIAL
     Route: 048
     Dates: start: 20141222
  5. JANUVIA [Concomitant]
     Active Substance: SITAGLIPTIN PHOSPHATE
     Route: 048
  6. FUCIDIN [Interacting]
     Active Substance: FUSIDIC ACID
     Indication: ARTHRITIS BACTERIAL
     Route: 048
     Dates: start: 20141204
  7. GLICLAZIDE [Concomitant]
     Active Substance: GLICLAZIDE
     Route: 048
  8. LASIX [Concomitant]
     Active Substance: FUROSEMIDE
     Dosage: 40 MG AND 20 MG AT LUNCH
  9. TIPURIC [Concomitant]
     Route: 048
  10. TRITACE [Concomitant]
     Active Substance: RAMIPRIL
     Route: 048

REACTIONS (4)
  - Renal impairment [Fatal]
  - Liver disorder [Fatal]
  - Drug interaction [Fatal]
  - Rhabdomyolysis [Fatal]

NARRATIVE: CASE EVENT DATE: 20150109
